FAERS Safety Report 4396612-4 (Version None)
Quarter: 2004Q3

REPORT INFORMATION
  Report Type: 
  Country: None (occurrence: None)
  Receive Date: 20040708
  Receipt Date: 20040621
  Transmission Date: 20050211
  Serious: Yes (Disabling)
  Sender: FDA-Public Use
  Company Number: 207628

PATIENT
  Age: 47 Year
  Sex: Female

DRUGS (12)
  1. HERCEPTIN [Suspect]
     Indication: BREAST CANCER METASTATIC
     Dosage: 4 MG/KG, SINGLE, INTRAVENOUS
     Route: 042
     Dates: start: 20011126, end: 20011124
  2. HERCEPTIN [Suspect]
     Indication: BREAST CANCER METASTATIC
     Dosage: 4 MG/KG, SINGLE, INTRAVENOUS
     Route: 042
     Dates: start: 20020107, end: 20021014
  3. HERCEPTIN [Suspect]
     Indication: BREAST CANCER METASTATIC
     Dosage: 4 MG/KG, SINGLE, INTRAVENOUS
     Route: 042
     Dates: start: 20011119
  4. FLUOROURACIL [Suspect]
     Indication: BREAST CANCER METASTATIC
     Dates: start: 20020520, end: 20021014
  5. LEUCOVORIN CALCIUM [Suspect]
     Indication: BREAST CANCER METASTATIC
     Dates: start: 20020520, end: 20021014
  6. TAXOTERE [Concomitant]
  7. PACLITAXEL [Concomitant]
  8. AREDIA [Concomitant]
  9. DIPHENHYDRAMINE HCL [Concomitant]
  10. VOLTAREN [Concomitant]
  11. DECADRON [Concomitant]
  12. FAMOTIDINE [Concomitant]

REACTIONS (10)
  - BONE MARROW DEPRESSION [None]
  - CARDIAC DISORDER [None]
  - DISSEMINATED INTRAVASCULAR COAGULATION [None]
  - EJECTION FRACTION DECREASED [None]
  - HOT FLUSH [None]
  - HYPOAESTHESIA [None]
  - MALIGNANT NEOPLASM PROGRESSION [None]
  - OEDEMA PERIPHERAL [None]
  - OPPORTUNISTIC INFECTION [None]
  - PNEUMONIA [None]
